FAERS Safety Report 9161641 (Version 1)
Quarter: 2013Q1

REPORT INFORMATION
  Report Type: Spontaneous
  Country: FR (occurrence: FR)
  Receive Date: 20130313
  Receipt Date: 20130313
  Transmission Date: 20140127
  Serious: Yes (Hospitalization)
  Sender: FDA-Public Use
  Company Number: FR-ABBOTT-08P-056-0785952-00

PATIENT
  Age: 81 None
  Sex: Male

DRUGS (6)
  1. DEPAKINE [Suspect]
     Indication: EPILEPSY
     Dosage: DAILY DOSE: 1000 MILLIGRAM(S)
     Route: 048
     Dates: start: 200803, end: 20080403
  2. COVERSYL [Suspect]
     Dosage: DAILY DOSE 4 MILLIGRAMS
  3. CHIBRO-PROSCAR [Suspect]
     Indication: PROSTATIC ADENOMA
     Dosage: DAILY DOSE: 5 MILLIGRAM(S)
     Route: 065
  4. SKELID [Suspect]
     Indication: PRODUCT USED FOR UNKNOWN INDICATION
     Dosage: DAILY DOSE: 400 MILLIGRAM(S)
     Route: 065
  5. KARDEGIC [Suspect]
     Indication: PROPHYLAXIS
     Dosage: DAILY DOSE: 75 MILLIGRAM(S)
     Route: 065
  6. TAHOR [Suspect]
     Indication: HYPERCHOLESTEROLAEMIA
     Dosage: DAILY DOSE: 80 MILLIGRAM(S)
     Route: 065

REACTIONS (5)
  - Fall [Recovered/Resolved]
  - Epilepsy [Recovered/Resolved]
  - Walking disability [Not Recovered/Not Resolved]
  - General physical health deterioration [Not Recovered/Not Resolved]
  - Dependence [Not Recovered/Not Resolved]
